FAERS Safety Report 6303036 (Version 3)
Quarter: 2025Q3

REPORT INFORMATION
  Report Type: Spontaneous
  Country: US (occurrence: US)
  Receive Date: 20070502
  Receipt Date: 20250813
  Transmission Date: 20251020
  Serious: Yes (Death)
  Sender: MERCK SHARP & DOHME LLC
  Company Number: US-MERCK-0704USA05791

PATIENT
  Age: 21 Year
  Sex: Female

DRUGS (2)
  1. CANCIDAS [Suspect]
     Active Substance: CASPOFUNGIN ACETATE
     Indication: Pulmonary mass
  2. AMPHOTERICIN B\CHOLESTEROL [Concomitant]
     Active Substance: AMPHOTERICIN B\CHOLESTEROL
     Indication: Pulmonary mass

REACTIONS (3)
  - Acute myeloid leukaemia [Fatal]
  - Drug ineffective [Unknown]
  - Infection [Unknown]
